FAERS Safety Report 6202118-X (Version None)
Quarter: 2009Q2

REPORT INFORMATION
  Report Type: 
  Country: None (occurrence: None)
  Receive Date: 20090526
  Receipt Date: 20090517
  Transmission Date: 20091009
  Serious: Yes (Death)
  Sender: FDA-Public Use
  Company Number: US-AVENTIS-200914296US

PATIENT
  Age: 73 Year
  Sex: Male

DRUGS (3)
  1. APIDRA [Suspect]
     Dosage: DOSE: 5 UNITS
     Route: 058
  2. OPTICLIK GREY [Suspect]
     Dosage: DOSE: UNK
  3. LANTUS [Suspect]
     Dosage: DOSE: UNK
     Route: 058

REACTIONS (3)
  - CARDIAC DISORDER [None]
  - SKIN DISCOLOURATION [None]
  - SKIN ULCER [None]
